FAERS Safety Report 4427192-2 (Version None)
Quarter: 2004Q3

REPORT INFORMATION
  Report Type: 
  Country: None (occurrence: None)
  Receive Date: 20040726
  Receipt Date: 20040510
  Transmission Date: 20050211
  Serious: Yes (Hospitalization, Disabling, Other)
  Sender: FDA-Public Use
  Company Number: USA040464663

PATIENT
  Age: 55 Year
  Sex: Female
  Weight: 78 kg

DRUGS (22)
  1. PROZAC [Suspect]
     Indication: FIBROMYALGIA
     Dosage: 40 MG/1 DAY
  2. FORTEO [Suspect]
     Indication: OSTEOPOROSIS
     Dosage: 2 UG/1 EVERY OTHER DAY
     Dates: start: 20040201
  3. VALIUM [Concomitant]
  4. PRILOSEC [Concomitant]
  5. KLONOPIN [Concomitant]
  6. ZYRTEC [Concomitant]
  7. DECONASAL II [Concomitant]
  8. ADVAIR DISKUS 100/50 [Concomitant]
  9. COMBIVENT [Concomitant]
  10. ATROVEN (IPRATROPIUM BROMIDE) [Concomitant]
  11. ASTELIN [Concomitant]
  12. NASACORT [Concomitant]
  13. VITAMIN D [Concomitant]
  14. CALCIUM W/MAGNESIUM [Concomitant]
  15. BORON [Concomitant]
  16. GTF CHROMIUM (CHROMIUM) [Concomitant]
  17. APPLE CIDER VINEGAR [Concomitant]
  18. MULTI-VITAMIN [Concomitant]
  19. FLAX SEED OIL [Concomitant]
  20. LOMOTIL [Concomitant]
  21. SYNTHROID [Concomitant]
  22. HYDROCODONE [Concomitant]

REACTIONS (43)
  - ABNORMAL SENSATION IN EYE [None]
  - ADVERSE DRUG REACTION [None]
  - ANOREXIA [None]
  - ARTHRALGIA [None]
  - ARTHRITIS [None]
  - ASTHENIA [None]
  - BACK DISORDER [None]
  - BLOOD PRESSURE DECREASED [None]
  - BODY HEIGHT DECREASED [None]
  - BONE PAIN [None]
  - CHOLECYSTECTOMY [None]
  - CONSTIPATION [None]
  - DIARRHOEA [None]
  - DIPLOPIA [None]
  - DISABILITY [None]
  - DIZZINESS [None]
  - DYSARTHRIA [None]
  - DYSPNOEA [None]
  - FEELING ABNORMAL [None]
  - GASTROINTESTINAL PAIN [None]
  - HEADACHE [None]
  - HYPERHIDROSIS [None]
  - HYPOAESTHESIA [None]
  - IMPATIENCE [None]
  - INJECTION SITE ERYTHEMA [None]
  - INJECTION SITE HAEMORRHAGE [None]
  - INJECTION SITE SWELLING [None]
  - INSOMNIA [None]
  - KNEE OPERATION [None]
  - KYPHOSIS [None]
  - MOBILITY DECREASED [None]
  - MUSCULOSKELETAL STIFFNESS [None]
  - NAUSEA [None]
  - OSTEOPOROSIS [None]
  - PAIN [None]
  - RESTLESSNESS [None]
  - RETCHING [None]
  - SENSATION OF FOREIGN BODY [None]
  - SPINAL FRACTURE [None]
  - SYNCOPE [None]
  - THROMBOSIS [None]
  - TRANSIENT ISCHAEMIC ATTACK [None]
  - TREMOR [None]
